FAERS Safety Report 6561926-6 (Version None)
Quarter: 2010Q1

REPORT INFORMATION
  Report Type: 
  Country: None (occurrence: None)
  Receive Date: 20100130
  Receipt Date: 20091113
  Transmission Date: 20100710
  Serious: Yes (Other)
  Sender: FDA-Public Use
  Company Number: US-ABBOTT-09P-163-0578442-00

PATIENT
  Sex: Female
  Weight: 72.64 kg

DRUGS (9)
  1. HUMIRA [Suspect]
     Indication: RHEUMATOID ARTHRITIS
     Route: 058
     Dates: start: 20050101, end: 20070101
  2. HUMIRA [Suspect]
     Indication: PSORIATIC ARTHROPATHY
     Route: 058
     Dates: start: 20090601, end: 20090901
  3. HUMIRA [Suspect]
     Route: 058
     Dates: start: 20090901, end: 20091001
  4. HUMIRA [Suspect]
     Route: 058
     Dates: start: 20091001
  5. CARDIZEM [Concomitant]
     Indication: DRUG USE FOR UNKNOWN INDICATION
  6. LEVOTHYROXINE SODIUM [Concomitant]
     Indication: DRUG USE FOR UNKNOWN INDICATION
  7. ASPIRIN [Concomitant]
     Indication: DRUG USE FOR UNKNOWN INDICATION
     Route: 048
  8. ADVIL [Concomitant]
     Indication: ARTHRITIS
     Dosage: 1-2 TABS EVERYDAY AS NEEDED
  9. ADRIAMYCIN PFS [Concomitant]
     Indication: BREAST CANCER
     Dates: start: 20070101

REACTIONS (10)
  - ANAEMIA [None]
  - ARTHRALGIA [None]
  - BREAST CANCER [None]
  - FATIGUE [None]
  - JOINT SWELLING [None]
  - LYMPHADENOPATHY [None]
  - MALAISE [None]
  - NASOPHARYNGITIS [None]
  - RED BLOOD CELL SEDIMENTATION RATE INCREASED [None]
  - SWELLING [None]
